FAERS Safety Report 8090234 (Version 3)
Quarter: 2014Q1

REPORT INFORMATION
  Report Type: Spontaneous
  Country: US (occurrence: US)
  Receive Date: 20110815
  Receipt Date: 20140221
  Transmission Date: 20141002
  Serious: Yes (Hospitalization)
  Sender: FDA-Public Use
  Company Number: US-GLAXOSMITHKLINE-A0940562A

PATIENT
  Age: 39 Year
  Sex: Female
  Weight: 108.2 kg

DRUGS (2)
  1. AVANDIA [Suspect]
     Indication: DIABETES MELLITUS
     Dosage: 4MG PER DAY
     Route: 048
     Dates: start: 200101, end: 2007
  2. AVANDARYL [Suspect]
     Indication: DIABETES MELLITUS
     Route: 048

REACTIONS (5)
  - Chest pain [Not Recovered/Not Resolved]
  - Cardiac disorder [Unknown]
  - Nerve injury [Unknown]
  - Chest discomfort [Unknown]
  - Drug ineffective [Unknown]
